FAERS Safety Report 5651793-7 (Version None)
Quarter: 2008Q1

REPORT INFORMATION
  Report Type: 
  Country: None (occurrence: None)
  Receive Date: 20080305
  Receipt Date: 20080228
  Transmission Date: 20080703
  Serious: Yes (Life-Threatening, Hospitalization)
  Sender: FDA-Public Use
  Company Number: US-GENENTECH-250371

PATIENT
  Sex: Female
  Weight: 72.5 kg

DRUGS (5)
  1. BEVACIZUMAB [Suspect]
     Indication: COLORECTAL CANCER
     Dosage: 5 MG/KG, Q2W
     Route: 042
     Dates: start: 20070724
  2. OXALIPLATIN [Suspect]
     Indication: COLORECTAL CANCER
     Dosage: UNK, Q2W
     Route: 042
     Dates: start: 20070724
  3. FLUOROURACIL [Suspect]
     Indication: COLORECTAL CANCER
     Dosage: UNK, Q2W
     Route: 042
     Dates: start: 20070724
  4. FOLINIC ACID [Concomitant]
     Indication: COLORECTAL CANCER
  5. IRINOTECAN [Concomitant]
     Indication: COLON CANCER

REACTIONS (1)
  - ILEUS [None]
